FAERS Safety Report 19024951 (Version 1)
Quarter: 2021Q1

REPORT INFORMATION
  Report Type: Spontaneous
  Country: US (occurrence: US)
  Receive Date: 20210317
  Receipt Date: 20210317
  Transmission Date: 20210420
  Serious: Yes (Hospitalization)
  Sender: FDA-Public Use
  Company Number: None

PATIENT
  Age: 59 Year
  Sex: Male
  Weight: 65.4 kg

DRUGS (1)
  1. CASIRIVIMAB\IMDEVIMAB 1200MG/ 1200MG IN 250 [Suspect]
     Active Substance: CASIRIVIMAB\IMDEVIMAB
     Indication: COVID-19
     Dosage: ?          OTHER DOSE:1200MG/1200MG/250M;?
     Route: 042
     Dates: start: 20210310, end: 20210310

REACTIONS (1)
  - Hypotension [None]

NARRATIVE: CASE EVENT DATE: 20210310
